FAERS Safety Report 6952146-1 (Version None)
Quarter: 2010Q3

REPORT INFORMATION
  Report Type: 
  Country: None (occurrence: None)
  Receive Date: 20100829
  Receipt Date: 20100614
  Transmission Date: 20110219
  Serious: No
  Sender: FDA-Public Use
  Company Number: US-ABBOTT-02P-163-0381857-00

PATIENT
  Sex: Male
  Weight: 74.91 kg

DRUGS (13)
  1. NIASPAN [Suspect]
     Indication: HIGH DENSITY LIPOPROTEIN DECREASED
     Route: 048
     Dates: start: 20011201
  2. NIASPAN [Suspect]
     Dosage: AT HOUR OF SLEEP
     Route: 048
  3. PRAVACHOL [Concomitant]
     Indication: HYPERTENSION
  4. TOPROL-XL [Concomitant]
     Indication: HYPERTENSION
  5. ALTACE [Concomitant]
     Indication: HYPERTENSION
  6. ACETYLSALICYLIC ACID ENTERIC COATED [Concomitant]
     Indication: PROPHYLAXIS
  7. ACETYLSALICYLIC ACID ENTERIC COATED [Concomitant]
     Indication: FLUSHING
  8. ASPIRIN [Concomitant]
     Indication: PRODUCT USED FOR UNKNOWN INDICATION
     Dosage: IN AM, AND EVENING BEFORE NIASPAN ER
     Route: 048
  9. FISH OIL [Concomitant]
     Indication: PRODUCT USED FOR UNKNOWN INDICATION
  10. GLUCOSAMINE + CHONDROITIN [Concomitant]
     Indication: PRODUCT USED FOR UNKNOWN INDICATION
  11. MULTI-VITAMIN [Concomitant]
     Indication: PRODUCT USED FOR UNKNOWN INDICATION
  12. SAL PALMETTO [Concomitant]
     Indication: PRODUCT USED FOR UNKNOWN INDICATION
  13. LYCOPINE [Concomitant]
     Indication: PRODUCT USED FOR UNKNOWN INDICATION

REACTIONS (1)
  - FLUSHING [None]
